FAERS Safety Report 5861871-5 (Version None)
Quarter: 2008Q3

REPORT INFORMATION
  Report Type: 
  Country: None (occurrence: None)
  Receive Date: 20080827
  Receipt Date: 20080717
  Transmission Date: 20090109
  Serious: No
  Sender: FDA-Public Use
  Company Number: US-ABBOTT-08P-163-0464149-00

PATIENT
  Sex: Female

DRUGS (2)
  1. NIASPAN [Suspect]
     Indication: DRUG USE FOR UNKNOWN INDICATION
     Route: 048
     Dates: start: 20080501
  2. PREDNISONE TAB [Concomitant]
     Indication: TENDONITIS
     Route: 048
     Dates: start: 20080721

REACTIONS (3)
  - MYALGIA [None]
  - TENDONITIS [None]
  - TOOTHACHE [None]
